FAERS Safety Report 12203653 (Version 2)
Quarter: 2016Q1

REPORT INFORMATION
  Report Type: Other
  Country: NO (occurrence: NO)
  Receive Date: 20160323
  Receipt Date: 20160323
  Transmission Date: 20160526
  Serious: Yes (Other)
  Sender: FDA-Public Use
  Company Number: NO-APOTEX-2016AP007282

PATIENT
  Age: 51 Year
  Sex: Female

DRUGS (15)
  1. HALDOL [Suspect]
     Active Substance: HALOPERIDOL
     Dosage: 4 MG, UNK
     Route: 048
     Dates: start: 20130327, end: 201311
  2. LORATADIN [Concomitant]
     Active Substance: LORATADINE
     Dosage: DOSAGE FORM: UNSPECIFIED
     Route: 065
  3. ZOPICLON [Concomitant]
     Active Substance: ZOPICLONE
     Indication: ANXIETY
     Dosage: DOSAGE FORM: UNSPECIFIED
     Route: 065
  4. LORATADIN [Concomitant]
     Active Substance: LORATADINE
     Indication: ANXIETY
     Dosage: DOSAGE FORM: UNSPECIFIED
     Route: 065
  5. ZOPICLON [Concomitant]
     Active Substance: ZOPICLONE
     Dosage: DOSAGE FORM: UNSPECIFIED
     Route: 065
  6. PAXIL [Suspect]
     Active Substance: PAROXETINE HYDROCHLORIDE
     Indication: ANXIETY
     Route: 065
  7. HALDOL [Suspect]
     Active Substance: HALOPERIDOL
     Indication: PSYCHOMOTOR HYPERACTIVITY
     Dosage: 1 MG, UNK
     Route: 048
     Dates: start: 20121101
  8. HALDOL [Suspect]
     Active Substance: HALOPERIDOL
     Indication: ALCOHOLISM
     Dosage: 2 MG, UNK
     Route: 048
     Dates: start: 20121017
  9. HALDOL [Suspect]
     Active Substance: HALOPERIDOL
     Dosage: UNK
     Route: 048
     Dates: start: 20120118
  10. PAXIL [Suspect]
     Active Substance: PAROXETINE HYDROCHLORIDE
     Indication: DEPRESSION
  11. ZOPICLON [Concomitant]
     Active Substance: ZOPICLONE
     Indication: DEPRESSION
     Dosage: DOSAGE FORM: UNSPECIFIED
     Route: 065
  12. LORATADIN [Concomitant]
     Active Substance: LORATADINE
     Indication: DEPRESSION
     Dosage: DOSAGE FORM: UNSPECIFIED
     Route: 065
  13. LORATADIN [Concomitant]
     Active Substance: LORATADINE
     Dosage: DOSAGE FORM: UNSPECIFIED
     Route: 065
  14. ZOPICLON [Concomitant]
     Active Substance: ZOPICLONE
     Dosage: DOSAGE FORM: UNSPECIFIED
     Route: 065
  15. HALDOL [Suspect]
     Active Substance: HALOPERIDOL
     Indication: SLEEP DISORDER
     Dosage: 1 MG, UNK
     Route: 048
     Dates: start: 20121101

REACTIONS (10)
  - Off label use [Unknown]
  - Constipation [Not Recovered/Not Resolved]
  - Tardive dyskinesia [Not Recovered/Not Resolved]
  - Social avoidant behaviour [Not Recovered/Not Resolved]
  - Dizziness [Not Recovered/Not Resolved]
  - Abdominal pain upper [Not Recovered/Not Resolved]
  - Tooth injury [Not Recovered/Not Resolved]
  - Product use issue [Unknown]
  - Quality of life decreased [Not Recovered/Not Resolved]
  - Extrapyramidal disorder [Not Recovered/Not Resolved]

NARRATIVE: CASE EVENT DATE: 20120118
